FAERS Safety Report 7283578-2 (Version None)
Quarter: 2011Q1

REPORT INFORMATION
  Report Type: 
  Country: None (occurrence: None)
  Receive Date: 20110209
  Receipt Date: 20110204
  Transmission Date: 20110831
  Serious: Yes (Hospitalization)
  Sender: FDA-Public Use
  Company Number: A0902852A

PATIENT
  Age: 64 Year
  Sex: Female

DRUGS (6)
  1. LAMICTAL [Suspect]
     Dosage: 200MG TWICE PER DAY
     Route: 065
  2. NITROFURANTOIN [Concomitant]
  3. MELATONIN [Concomitant]
  4. LAMICTAL [Suspect]
     Dosage: 300MG PER DAY
     Route: 048
     Dates: start: 20080606
  5. LAMICTAL [Suspect]
     Indication: EPILEPSY
     Dosage: 150MG TWICE PER DAY
     Route: 048
     Dates: start: 20060201, end: 20080606
  6. LEVAQUIN [Concomitant]

REACTIONS (6)
  - HALLUCINATION [None]
  - VOMITING [None]
  - DRUG INEFFECTIVE [None]
  - PETIT MAL EPILEPSY [None]
  - EUPHORIC MOOD [None]
  - CONVULSION [None]
